FAERS Safety Report 10991113 (Version 3)
Quarter: 2015Q2

REPORT INFORMATION
  Report Type: Report from Study
  Country: BR (occurrence: BR)
  Receive Date: 20150406
  Receipt Date: 20150608
  Transmission Date: 20150821
  Serious: Yes (Death, Other)
  Sender: FDA-Public Use
  Company Number: BR-BAYER-2015-068819

PATIENT
  Age: 53 Year
  Sex: Male

DRUGS (3)
  1. NEXAVAR [Suspect]
     Active Substance: SORAFENIB
     Indication: HEPATIC CANCER
     Dosage: 200 MG, QD
     Route: 048
     Dates: start: 20150321
  2. NEXAVAR [Suspect]
     Active Substance: SORAFENIB
     Indication: HEPATIC CANCER
     Dosage: 400 MG, QD 1 TABLET IN THE MORNING AND 1 TABLET AT NIGHT
     Route: 048
     Dates: start: 2015, end: 20150318
  3. NEXAVAR [Suspect]
     Active Substance: SORAFENIB
     Indication: HEPATIC CANCER
     Dosage: 400 MG, UNK
     Route: 048
     Dates: start: 201412, end: 201501

REACTIONS (13)
  - Nausea [Recovered/Resolved]
  - Pain in extremity [Recovered/Resolved]
  - Gingival bleeding [Recovered/Resolved]
  - Alopecia [Recovering/Resolving]
  - Weight decreased [Not Recovered/Not Resolved]
  - Epistaxis [Recovered/Resolved]
  - Dry skin [Not Recovered/Not Resolved]
  - Skin fissures [Recovered/Resolved]
  - Gingival bleeding [Not Recovered/Not Resolved]
  - Feeling abnormal [None]
  - Asthenia [Not Recovered/Not Resolved]
  - Death [Fatal]
  - Hepatic cancer [None]

NARRATIVE: CASE EVENT DATE: 201412
